FAERS Safety Report 8994431 (Version 1)
Quarter: 2012Q4

REPORT INFORMATION
  Report Type: Spontaneous
  Country: US (occurrence: None)
  Receive Date: 20121228
  Receipt Date: 20121228
  Transmission Date: 20130627
  Serious: Yes (Hospitalization)
  Sender: FDA-Public Use
  Company Number: None

PATIENT
  Age: 63 Year
  Sex: Male
  Weight: 72.2 kg

DRUGS (2)
  1. ZOLPIDEM [Suspect]
     Dosage: MG PO
     Route: 048
     Dates: start: 20110204, end: 20121213
  2. ALPRAZOLAM [Suspect]
     Dosage: MG PO
     Route: 048
     Dates: start: 20110526

REACTIONS (5)
  - Delirium [None]
  - Abnormal behaviour [None]
  - Somnambulism [None]
  - Incorrect dose administered [None]
  - Road traffic accident [None]
